FAERS Safety Report 6784849-6 (Version None)
Quarter: 2010Q2

REPORT INFORMATION
  Report Type: 
  Country: None (occurrence: None)
  Receive Date: 20100622
  Receipt Date: 20100618
  Transmission Date: 20101027
  Serious: Yes (Other)
  Sender: FDA-Public Use
  Company Number: US-B.I. PHARMACEUTICALS,INC./RIDGEFIELD-2010-BP-06956BP

PATIENT
  Sex: Male

DRUGS (7)
  1. SPIRIVA [Suspect]
     Indication: DYSPNOEA
     Route: 055
     Dates: start: 20080101, end: 20100616
  2. SPIRIVA [Suspect]
     Route: 055
     Dates: start: 20100618
  3. METOPROLOL TARTRATE [Concomitant]
     Indication: ATRIAL FIBRILLATION
     Dosage: 50 MG
     Route: 048
  4. DIGOXIN [Concomitant]
     Indication: ATRIAL FIBRILLATION
     Route: 048
  5. DICLOFENAC SODIUM [Concomitant]
     Indication: ARTHRITIS
     Route: 048
  6. PEPCID [Concomitant]
     Indication: ABDOMINAL DISCOMFORT
  7. ALLEGRA [Concomitant]
     Indication: SEASONAL ALLERGY

REACTIONS (1)
  - ATRIAL FIBRILLATION [None]
